FAERS Safety Report 15392770 (Version 2)
Quarter: 2018Q4

REPORT INFORMATION
  Report Type: Report from Study
  Country: KR (occurrence: KR)
  Receive Date: 20180917
  Receipt Date: 20181115
  Transmission Date: 20190204
  Serious: Yes (Other)
  Sender: FDA-Public Use
  Company Number: KR-009507513-1809KOR006727

PATIENT
  Age: 40 Year
  Sex: Male
  Weight: 86.7 kg

DRUGS (11)
  1. MAXIPIME [Concomitant]
     Active Substance: CEFEPIME HYDROCHLORIDE
     Dosage: 2 G, TID
     Route: 042
     Dates: start: 20171011, end: 20171019
  2. VANCO [Concomitant]
     Active Substance: VANCOMYCIN
     Indication: ACUTE MYELOMONOCYTIC LEUKAEMIA
     Dosage: 2 G, BID
     Route: 042
     Dates: start: 20171020
  3. CYTOSAR U [Concomitant]
     Indication: ACUTE MYELOMONOCYTIC LEUKAEMIA
     Dosage: 300 MG, QD
     Route: 042
     Dates: start: 20171010, end: 20171011
  4. KYTRIL [Concomitant]
     Active Substance: GRANISETRON HYDROCHLORIDE
     Indication: PROPHYLAXIS OF NAUSEA AND VOMITING
     Dosage: 3 MG, QD
     Route: 042
     Dates: start: 20171010, end: 20171012
  5. CYTOSAR U [Concomitant]
     Dosage: 200 MG, QD
     Route: 042
     Dates: start: 20171012, end: 20171016
  6. ALLOPURINOL. [Concomitant]
     Active Substance: ALLOPURINOL
     Dosage: 200 MG, QD
     Route: 048
     Dates: start: 20171016, end: 20171019
  7. POSACONAZOLE [Suspect]
     Active Substance: POSACONAZOLE
     Indication: PROPHYLAXIS
     Dosage: 300 MILLIGRAM, BID
     Route: 048
     Dates: start: 20171010, end: 20171010
  8. ALLOPURINOL. [Concomitant]
     Active Substance: ALLOPURINOL
     Indication: PROPHYLAXIS
     Dosage: 300 MG, QD
     Route: 048
     Dates: start: 20171006, end: 20171015
  9. MAXIPIME [Concomitant]
     Active Substance: CEFEPIME HYDROCHLORIDE
     Indication: ACUTE MYELOMONOCYTIC LEUKAEMIA
     Dosage: 2 G, TID
     Route: 042
     Dates: start: 20171010, end: 20171010
  10. ZAVEDOS [Concomitant]
     Active Substance: IDARUBICIN
     Indication: ACUTE MYELOMONOCYTIC LEUKAEMIA
     Dosage: 24 MG, QD
     Route: 042
     Dates: start: 20171010, end: 20171012
  11. POSACONAZOLE [Suspect]
     Active Substance: POSACONAZOLE
     Dosage: 300 MILLIGRAM, QD
     Route: 048
     Dates: start: 20181011

REACTIONS (1)
  - Febrile neutropenia [Recovered/Resolved]

NARRATIVE: CASE EVENT DATE: 20171019
